FAERS Safety Report 25669136 (Version 1)
Quarter: 2025Q3

REPORT INFORMATION
  Report Type: Spontaneous
  Country: JP (occurrence: JP)
  Receive Date: 20250812
  Receipt Date: 20250812
  Transmission Date: 20251020
  Serious: Yes (Other)
  Sender: RANBAXY
  Company Number: JP-SUN PHARMACEUTICAL INDUSTRIES LTD-2025RR-522099

PATIENT
  Age: 64 Year
  Sex: Female

DRUGS (4)
  1. PEMETREXED [Suspect]
     Active Substance: PEMETREXED
     Indication: Chemotherapy
     Route: 065
  2. ERLOTINIB [Suspect]
     Active Substance: ERLOTINIB
     Indication: Chemotherapy
     Route: 065
  3. CARBOPLATIN [Suspect]
     Active Substance: CARBOPLATIN
     Indication: Chemotherapy
     Route: 065
  4. DOCETAXEL [Suspect]
     Active Substance: DOCETAXEL
     Route: 065

REACTIONS (4)
  - Drug intolerance [Unknown]
  - Carcinoembryonic antigen increased [Recovering/Resolving]
  - Drug ineffective [Unknown]
  - Disease progression [Unknown]
